FAERS Safety Report 6110956-7 (Version None)
Quarter: 2009Q1

REPORT INFORMATION
  Report Type: 
  Country: None (occurrence: None)
  Receive Date: 20090311
  Receipt Date: 20090309
  Transmission Date: 20090719
  Serious: Yes (Other)
  Sender: FDA-Public Use
  Company Number: US-BRISTOL-MYERS SQUIBB COMPANY-14535330

PATIENT
  Age: 46 Year
  Sex: Female
  Weight: 49 kg

DRUGS (7)
  1. ABILIFY [Suspect]
     Indication: DEPRESSION
     Dosage: TITRATED TO 30MG QD
     Dates: start: 20071001, end: 20081001
  2. LEVOXYL [Concomitant]
     Dosage: 6-7 YRS.
  3. PREVACID [Concomitant]
     Dates: start: 20000101
  4. CLIMARA [Concomitant]
     Dosage: CLIMARA PATCH.
     Dates: start: 20040101
  5. MULTI-VITAMIN [Concomitant]
  6. CALCIUM + VITAMIN D [Concomitant]
  7. ANTIBIOTICS [Concomitant]
     Indication: CELLULITIS
     Dosage: MULTIPLE ANTIBIOTICS.
     Dates: start: 20080701, end: 20081201

REACTIONS (5)
  - CELLULITIS [None]
  - FLAT AFFECT [None]
  - GALLBLADDER DISORDER [None]
  - PANCREATITIS [None]
  - TINEA PEDIS [None]
